FAERS Safety Report 9940821 (Version 2)
Quarter: 2014Q2

REPORT INFORMATION
  Report Type: Spontaneous
  Country: US (occurrence: US)
  Receive Date: 20140303
  Receipt Date: 20140528
  Transmission Date: 20141212
  Serious: No
  Sender: FDA-Public Use
  Company Number: US-MYLANLABS-2014S1001847

PATIENT
  Age: 78 Year
  Sex: Male
  Weight: 90.72 kg

DRUGS (3)
  1. MONTELUKAST SODIUM TABLETS [Suspect]
     Indication: MULTIPLE ALLERGIES
     Route: 048
     Dates: start: 20140113, end: 20140116
  2. MONTELUKAST SODIUM TABLETS [Suspect]
     Indication: SINUSITIS
     Route: 048
     Dates: start: 20140113, end: 20140116
  3. ANTIHYPERTENSIVES [Concomitant]
     Indication: HYPERTENSION

REACTIONS (2)
  - Chest discomfort [Recovered/Resolved]
  - Dyspepsia [Recovered/Resolved]
